FAERS Safety Report 11728744 (Version 1)
Quarter: 2015Q4

REPORT INFORMATION
  Report Type: Spontaneous
  Country: US (occurrence: US)
  Receive Date: 20151112
  Receipt Date: 20151112
  Transmission Date: 20160304
  Serious: Yes (Hospitalization)
  Sender: FDA-Public Use
  Company Number: US-PFIZER INC-2015382420

PATIENT
  Age: 65 Year
  Sex: Male
  Weight: 79 kg

DRUGS (10)
  1. COUMADIN [Concomitant]
     Active Substance: WARFARIN SODIUM
     Indication: PULMONARY HYPERTENSION
  2. NORCO [Concomitant]
     Active Substance: ACETAMINOPHEN\HYDROCODONE BITARTRATE
     Indication: PAIN
     Dosage: [HYDROCODONE BITARTRATE 5MG]/[ACETAMINOPHEN 325 MG] TABLET, ONCE A DAY
     Route: 048
     Dates: start: 2011
  3. REVATIO [Suspect]
     Active Substance: SILDENAFIL CITRATE
     Indication: PULMONARY HYPERTENSION
     Dosage: 20MG, TABLETS, 3 TIMES A DAY
     Route: 048
     Dates: start: 2007
  4. LISINOPRIL AND HYDROCHLOROTHIAZIDE [Concomitant]
     Active Substance: HYDROCHLOROTHIAZIDE\LISINOPRIL
     Indication: BLOOD PRESSURE ABNORMAL
     Dosage: [LISINOPRIL 10 MG]/[HYDROCHLOROTHIAZIDE 12.5 MG], ONCE A DAY,HALF BLOOD PRESSURE AND HALF WATER PILL
     Route: 048
     Dates: start: 2008
  5. COUMADIN [Concomitant]
     Active Substance: WARFARIN SODIUM
     Indication: BLOOD DISORDER
     Dosage: 6MG, ONCE A DAY
     Route: 048
  6. NEURONTIN [Concomitant]
     Active Substance: GABAPENTIN
     Indication: DIABETIC NEUROPATHY
     Dosage: 600MG, TABLET, ONCE A DAY
     Route: 048
     Dates: start: 2009
  7. METOPROLOL [Concomitant]
     Active Substance: METOPROLOL
     Indication: ATRIAL FIBRILLATION
     Dosage: 25MG TABLET, TAKES HALF IN THE MORNING AND HALF IN THE EVENING
     Route: 048
     Dates: start: 201502
  8. METFORMIN [Concomitant]
     Active Substance: METFORMIN HYDROCHLORIDE
     Indication: DIABETES MELLITUS
     Dosage: 1000MG TABLET, TWICE A DAY
     Route: 048
     Dates: start: 2001
  9. SIMVASTATIN. [Concomitant]
     Active Substance: SIMVASTATIN
     Indication: BLOOD CHOLESTEROL ABNORMAL
     Dosage: 40MG, TABLET, ONCE A DAY
     Route: 048
     Dates: start: 2010
  10. GLIPIZIDE. [Concomitant]
     Active Substance: GLIPIZIDE
     Indication: DIABETES MELLITUS
     Dosage: 5MG TABLET, CUTS IN HALF TO TAKE A HALF OF A TABLET, TWICE A DAY
     Route: 048
     Dates: start: 20140616

REACTIONS (1)
  - Intestinal obstruction [Recovering/Resolving]

NARRATIVE: CASE EVENT DATE: 20151020
